FAERS Safety Report 6069670-9 (Version None)
Quarter: 2009Q1

REPORT INFORMATION
  Report Type: 
  Country: None (occurrence: None)
  Receive Date: 20090209
  Receipt Date: 20090128
  Transmission Date: 20090719
  Serious: Yes (Hospitalization)
  Sender: FDA-Public Use
  Company Number: DE-JNJFOC-20070107573

PATIENT
  Age: 48 Year
  Sex: Female

DRUGS (21)
  1. REMICADE [Suspect]
     Indication: RHEUMATOID ARTHRITIS
     Route: 042
  2. LEFLUNOMIDE [Suspect]
     Route: 065
  3. LEFLUNOMIDE [Suspect]
     Route: 065
  4. LEFLUNOMIDE [Suspect]
     Route: 065
  5. LEFLUNOMIDE [Suspect]
     Route: 065
  6. LEFLUNOMIDE [Suspect]
     Route: 065
  7. LEFLUNOMIDE [Suspect]
     Route: 065
  8. LEFLUNOMIDE [Suspect]
     Route: 065
  9. LEFLUNOMIDE [Suspect]
     Indication: RHEUMATOID ARTHRITIS
     Route: 065
  10. METHOTREXATE [Suspect]
     Route: 065
  11. METHOTREXATE [Suspect]
     Route: 065
  12. METHOTREXATE [Suspect]
     Route: 065
  13. METHOTREXATE [Suspect]
     Route: 065
  14. METHOTREXATE [Suspect]
     Route: 065
  15. METHOTREXATE [Suspect]
     Route: 065
  16. METHOTREXATE [Suspect]
     Route: 065
  17. METHOTREXATE [Suspect]
     Route: 065
  18. METHOTREXATE [Suspect]
     Route: 065
  19. METHOTREXATE [Suspect]
     Route: 065
  20. METHOTREXATE [Suspect]
     Route: 065
  21. METHOTREXATE [Suspect]
     Indication: RHEUMATOID ARTHRITIS
     Route: 065

REACTIONS (3)
  - ARTHRODESIS [None]
  - JOINT ARTHROPLASTY [None]
  - WOUND INFECTION [None]
